FAERS Safety Report 22535294 (Version 1)
Quarter: 2023Q2

REPORT INFORMATION
  Report Type: Spontaneous
  Country: US (occurrence: US)
  Receive Date: 20230608
  Receipt Date: 20230608
  Transmission Date: 20230722
  Serious: Yes (Other)
  Sender: FDA-Public Use
  Company Number: US-MYLANLABS-2023M1058583

PATIENT

DRUGS (1)
  1. WIXELA INHUB [Suspect]
     Active Substance: FLUTICASONE PROPIONATE\SALMETEROL XINAFOATE
     Indication: Product used for unknown indication
     Dosage: UNK
     Route: 065

REACTIONS (11)
  - Upper respiratory tract infection [Unknown]
  - Nausea [Unknown]
  - Vomiting [Unknown]
  - Bronchitis [Unknown]
  - Asthma [Unknown]
  - Cough [Unknown]
  - Dysphonia [Unknown]
  - Oral candidiasis [Unknown]
  - Headache [Unknown]
  - Pharyngitis [Unknown]
  - Therapeutic product effect decreased [Unknown]
